FAERS Safety Report 9026601 (Version 1)
Quarter: 2013Q1

REPORT INFORMATION
  Report Type: Spontaneous
  Country: US (occurrence: None)
  Receive Date: 20130114
  Receipt Date: 20130114
  Transmission Date: 20140127
  Serious: Yes (Other)
  Sender: FDA-Public Use
  Company Number: None

PATIENT
  Sex: Female
  Weight: 49.9 kg

DRUGS (2)
  1. XARELTO 15MG JANSSEN [Suspect]
     Dosage: 1 TABLET ONCE A DAY
     Dates: start: 20121102
  2. XARELTO 15MG JANSSEN [Suspect]
     Dosage: 1 TABLET ONCE A DAY
     Dates: start: 20121102

REACTIONS (2)
  - Faeces discoloured [None]
  - Haemorrhage [None]
